FAERS Safety Report 9285735 (Version 1)
Quarter: 2013Q2

REPORT INFORMATION
  Report Type: Spontaneous
  Country: JP (occurrence: None)
  Receive Date: 20130507
  Receipt Date: 20130507
  Transmission Date: 20140414
  Serious: Yes (Other)
  Sender: FDA-Public Use
  Company Number: DSJ-2013-07448

PATIENT
  Age: 64 Year
  Sex: Male

DRUGS (8)
  1. OLMETEC [Suspect]
     Indication: HYPERTENSION
     Dosage: 20 MG (20 MG, 1 IN 1 D), UNKNOWN
     Dates: end: 20130322
  2. LYRICA [Suspect]
     Indication: POST HERPETIC NEURALGIA
     Dosage: 25 MG (25 MG, 1 IN 1 D), PER ORAL
     Route: 048
     Dates: start: 20130311, end: 20130322
  3. NORVASC [Suspect]
     Indication: HYPERTENSION
     Dosage: 5 MG (5 MG, 1 IN 1 D), UNKNOWN
     Dates: end: 20130322
  4. LASIX (FUROSEMIDE) (FUROSEMIDE) [Concomitant]
  5. LANTUS (INSULIN GLARGINE) (INSULIN GLARGINE) [Concomitant]
  6. ONE-ALPHA (ALFACALCIDOL) (ALFACALCIDOL) [Concomitant]
  7. CALTAN (CALCIUM CARBONATE) (CALCIUM CARBONATE) [Concomitant]
  8. CALONAL (PARACETAMOL) (PARACETAMOL) [Concomitant]

REACTIONS (1)
  - Loss of consciousness [None]
